FAERS Safety Report 5099001-2 (Version None)
Quarter: 2006Q3

REPORT INFORMATION
  Report Type: 
  Country: None (occurrence: None)
  Receive Date: 20060731
  Receipt Date: 20050728
  Transmission Date: 20061208
  Serious: Yes (Other)
  Sender: FDA-Public Use
  Company Number: US-2005-015161

PATIENT
  Age: 36 Year
  Sex: Female
  Weight: 61.2 kg

DRUGS (1)
  1. MAGNEVIST [Suspect]
     Indication: NUCLEAR MAGNETIC RESONANCE IMAGING BRAIN
     Dosage: 12.5 ML, 1 DOSE, INTRAVENOUS
     Route: 042
     Dates: start: 20050701, end: 20050701

REACTIONS (5)
  - CONVULSION [None]
  - DYSPNOEA [None]
  - HYPOTENSION [None]
  - PALLOR [None]
  - SNEEZING [None]
